FAERS Safety Report 13013964 (Version 2)
Quarter: 2016Q4

REPORT INFORMATION
  Report Type: Spontaneous
  Country: US (occurrence: US)
  Receive Date: 20161209
  Receipt Date: 20161223
  Transmission Date: 20170207
  Serious: No
  Sender: FDA-Public Use
  Company Number: US-GLAXOSMITHKLINE-US2016181103

PATIENT
  Age: 57 Year
  Sex: Female

DRUGS (4)
  1. BENLYSTA [Suspect]
     Active Substance: BELIMUMAB
     Dosage: UNK
     Dates: end: 201608
  2. SEROQUEL [Concomitant]
     Active Substance: QUETIAPINE FUMARATE
  3. BENLYSTA [Suspect]
     Active Substance: BELIMUMAB
     Indication: SYSTEMIC LUPUS ERYTHEMATOSUS
     Dosage: UNK UNK, CYC
     Route: 042
     Dates: start: 2016
  4. CYMBALTA [Concomitant]
     Active Substance: DULOXETINE HYDROCHLORIDE

REACTIONS (7)
  - Post procedural complication [Recovered/Resolved]
  - Arthralgia [Unknown]
  - Wound [Recovered/Resolved]
  - Decubitus ulcer [Unknown]
  - Impaired healing [Recovered/Resolved]
  - Skin disorder [Unknown]
  - Biopsy [Recovered/Resolved]

NARRATIVE: CASE EVENT DATE: 201608
